FAERS Safety Report 4301394-8 (Version None)
Quarter: 2004Q1

REPORT INFORMATION
  Report Type: 
  Country: None (occurrence: None)
  Receive Date: 20040223
  Receipt Date: 20031031
  Transmission Date: 20041129
  Serious: Yes (Other)
  Sender: FDA-Public Use
  Company Number: US-GLAXOSMITHKLINE-A0432630A

PATIENT

DRUGS (1)
  1. NAVELBINE [Suspect]
     Dosage: 30MGM2 UNKNOWN
     Route: 042

REACTIONS (5)
  - ABDOMINAL PAIN [None]
  - CONSTIPATION [None]
  - ILEUS [None]
  - INTESTINAL DILATATION [None]
  - VOMITING [None]
